FAERS Safety Report 9761554 (Version 2)
Quarter: 2014Q1

REPORT INFORMATION
  Report Type: Report from Study
  Country: MX (occurrence: MX)
  Receive Date: 20131216
  Receipt Date: 20140227
  Transmission Date: 20141002
  Serious: Yes (Hospitalization)
  Sender: FDA-Public Use
  Company Number: MX-BAYER-2013-151203

PATIENT
  Age: 49 Year
  Sex: Female
  Weight: 67.1 kg

DRUGS (3)
  1. REGORAFENIB [Suspect]
     Indication: COLORECTAL CANCER METASTATIC
     Dosage: 40 MG
     Route: 048
     Dates: start: 20131111, end: 20131208
  2. REGORAFENIB [Suspect]
     Indication: COLORECTAL CANCER METASTATIC
  3. REGORAFENIB [Suspect]
     Indication: COLORECTAL CANCER METASTATIC

REACTIONS (1)
  - Acute respiratory distress syndrome [Not Recovered/Not Resolved]
